FAERS Safety Report 16358390 (Version 3)
Quarter: 2020Q2

REPORT INFORMATION
  Report Type: Spontaneous
  Country: US (occurrence: US)
  Receive Date: 20190527
  Receipt Date: 20200616
  Transmission Date: 20200713
  Serious: No
  Sender: FDA-Public Use
  Company Number: US-STRONGBRIDGE BIOPHARMA-2019-STR-000109

PATIENT
  Sex: Male

DRUGS (3)
  1. KEVEYIS [Suspect]
     Active Substance: DICHLORPHENAMIDE
     Dosage: 50 MG, QD EVENING
     Route: 048
  2. KEVEYIS [Suspect]
     Active Substance: DICHLORPHENAMIDE
     Dosage: 25 MG, QD MORNING
     Route: 048
  3. KEVEYIS [Suspect]
     Active Substance: DICHLORPHENAMIDE
     Indication: FAMILIAL PERIODIC PARALYSIS
     Dosage: 50 MG, BID
     Route: 048
     Dates: start: 20190328

REACTIONS (7)
  - Eructation [Not Recovered/Not Resolved]
  - Dysgeusia [Unknown]
  - Chromaturia [Unknown]
  - Nausea [Recovered/Resolved]
  - Wrong technique in product usage process [Unknown]
  - Joint swelling [Not Recovered/Not Resolved]
  - Parosmia [Unknown]

NARRATIVE: CASE EVENT DATE: 2018
